FAERS Safety Report 4910651-3 (Version None)
Quarter: 2006Q1

REPORT INFORMATION
  Report Type: 
  Country: None (occurrence: None)
  Receive Date: 20060214
  Receipt Date: 20050919
  Transmission Date: 20060701
  Serious: Yes (Death, Life-Threatening, Hospitalization)
  Sender: FDA-Public Use
  Company Number: DE-BRISTOL-MYERS SQUIBB COMPANY-13118880

PATIENT
  Age: 50 Year
  Sex: Male

DRUGS (13)
  1. CETUXIMAB [Suspect]
     Indication: NON-SMALL CELL LUNG CANCER
     Route: 041
     Dates: start: 20050916
  2. NEBILET [Concomitant]
  3. CYNT [Concomitant]
  4. SALBUTAMOL SULFATE [Concomitant]
  5. SPIRIVA [Concomitant]
  6. VOLTAREN [Concomitant]
  7. PANTOZOL [Concomitant]
  8. CIPROFLOXACIN [Concomitant]
  9. ACETAMINOPHEN [Concomitant]
  10. ALBUMIN (HUMAN) [Concomitant]
  11. FENISTIL [Concomitant]
  12. FORTECORTIN [Concomitant]
  13. KYTRIL [Concomitant]

REACTIONS (5)
  - ANAPHYLACTIC SHOCK [None]
  - CEREBRAL ISCHAEMIA [None]
  - RENAL FAILURE [None]
  - SEPSIS [None]
  - SHOCK [None]
